FAERS Safety Report 5503288-9 (Version None)
Quarter: 2007Q4

REPORT INFORMATION
  Report Type: 
  Country: None (occurrence: None)
  Receive Date: 20071031
  Receipt Date: 20071025
  Transmission Date: 20080405
  Serious: Yes (Other)
  Sender: FDA-Public Use
  Company Number: AU-ROXANE LABORATORIES, INC-2007-BP-23345RO

PATIENT
  Age: 34 Year
  Sex: Female

DRUGS (11)
  1. METHOTREXATE [Suspect]
     Indication: PUSTULAR PSORIASIS
     Route: 048
  2. METHOTREXATE [Suspect]
     Dates: start: 20041101
  3. EFALIZUMAB [Suspect]
     Indication: PUSTULAR PSORIASIS
     Route: 058
     Dates: start: 20041101
  4. CYCLOSPORINE [Suspect]
     Indication: PUSTULAR PSORIASIS
  5. CYCLOSPORINE [Suspect]
     Dates: start: 20041101
  6. MYCOPHENOLATE MOFETIL [Suspect]
     Indication: PUSTULAR PSORIASIS
  7. ALEFACEPT [Suspect]
     Indication: PUSTULAR PSORIASIS
  8. HYDROXYCARBAMIDE [Suspect]
     Indication: PUSTULAR PSORIASIS
  9. AMPHOTERICIN B DESOXYCHOLATE [Concomitant]
     Indication: DISSEMINATED CRYPTOCOCCOSIS
     Route: 042
  10. FLUCYTOSINE [Concomitant]
     Indication: DISSEMINATED CRYPTOCOCCOSIS
     Route: 042
  11. FLUCONAZOLE [Concomitant]
     Indication: DISSEMINATED CRYPTOCOCCOSIS

REACTIONS (5)
  - CRYPTOCOCCAL CUTANEOUS INFECTION [None]
  - DRUG INEFFECTIVE [None]
  - HEADACHE [None]
  - MENINGITIS CRYPTOCOCCAL [None]
  - WEIGHT DECREASED [None]
